FAERS Safety Report 26067623 (Version 2)
Quarter: 2025Q4

REPORT INFORMATION
  Report Type: Spontaneous
  Country: US (occurrence: US)
  Receive Date: 20251120
  Receipt Date: 20251121
  Transmission Date: 20260118
  Serious: No
  Sender: NOVARTIS
  Company Number: US-002147023-NVSC2025US178534

PATIENT
  Age: 20 Year
  Sex: Female

DRUGS (1)
  1. RHAPSIDO [Suspect]
     Active Substance: REMIBRUTINIB
     Indication: Chronic spontaneous urticaria
     Dosage: 25 MG, BID
     Route: 048
     Dates: start: 202511

REACTIONS (3)
  - Eye contusion [Not Recovered/Not Resolved]
  - Contusion [Not Recovered/Not Resolved]
  - Petechiae [Not Recovered/Not Resolved]

NARRATIVE: CASE EVENT DATE: 20251111
